FAERS Safety Report 6318345-7 (Version None)
Quarter: 2009Q3

REPORT INFORMATION
  Report Type: 
  Country: None (occurrence: None)
  Receive Date: 20090821
  Receipt Date: 20090813
  Transmission Date: 20100115
  Serious: Yes (Hospitalization)
  Sender: FDA-Public Use
  Company Number: JP-MERCK-0908USA03086

PATIENT
  Age: 48 Year
  Sex: Male

DRUGS (2)
  1. PROPECIA [Suspect]
     Indication: ANDROGENETIC ALOPECIA
     Route: 048
     Dates: start: 20060410
  2. KERLONG [Concomitant]
     Indication: HYPERTENSION
     Route: 048

REACTIONS (3)
  - HYPOPROTEINAEMIA [None]
  - NEPHROTIC SYNDROME [None]
  - PROTEINURIA [None]
